FAERS Safety Report 4684410-3 (Version None)
Quarter: 2005Q2

REPORT INFORMATION
  Report Type: 
  Country: None (occurrence: None)
  Receive Date: 20050531
  Receipt Date: 20040601
  Transmission Date: 20051028
  Serious: Yes (Hospitalization)
  Sender: FDA-Public Use
  Company Number: 200413475US

PATIENT
  Age: 74 Year
  Sex: Male

DRUGS (3)
  1. LOVENOX [Suspect]
     Indication: ATRIAL FIBRILLATION
     Dosage: 1MG/KG (120) MG Q12H, SC
     Route: 058
     Dates: start: 20040501, end: 20040503
  2. WARFARIN SODIUM [Concomitant]
  3. HEART MEDICATIONS NOS [Concomitant]

REACTIONS (6)
  - BLOOD CREATININE INCREASED [None]
  - HAEMORRHAGE [None]
  - HYPOTENSION [None]
  - MUSCLE HAEMORRHAGE [None]
  - RENAL FAILURE [None]
  - RESPIRATORY FAILURE [None]
